FAERS Safety Report 5743799-4 (Version None)
Quarter: 2008Q2

REPORT INFORMATION
  Report Type: 
  Country: None (occurrence: None)
  Receive Date: 20080520
  Receipt Date: 20080501
  Transmission Date: 20081010
  Serious: Yes (Disabling)
  Sender: FDA-Public Use
  Company Number: GB-TEVA-171104ISR

PATIENT
  Age: 46 Year

DRUGS (4)
  1. CARBAMAZEPINE [Suspect]
     Indication: EPILEPSY
     Route: 048
  2. GABAPENTIN [Suspect]
     Indication: EPILEPSY
  3. LAMOTRIGINE [Suspect]
     Indication: EPILEPSY
     Route: 048
  4. TOPIRAMATE [Suspect]
     Indication: EPILEPSY

REACTIONS (4)
  - MACULAR DEGENERATION [None]
  - MACULOPATHY [None]
  - RETINAL DEPOSITS [None]
  - VISUAL ACUITY REDUCED [None]
